FAERS Safety Report 7737419-7 (Version None)
Quarter: 2011Q3

REPORT INFORMATION
  Report Type: 
  Country: None (occurrence: None)
  Receive Date: 20110908
  Receipt Date: 20110830
  Transmission Date: 20111222
  Serious: Yes (Hospitalization)
  Sender: FDA-Public Use
  Company Number: US-GLAXOSMITHKLINE-A0804265A

PATIENT
  Sex: Male
  Weight: 131.4 kg

DRUGS (14)
  1. AVANDIA [Suspect]
     Indication: DIABETES MELLITUS
     Route: 048
     Dates: start: 20030101, end: 20070701
  2. METFORMIN HCL [Concomitant]
  3. TRAZODONE HCL [Concomitant]
  4. PROZAC [Concomitant]
  5. INSULIN [Concomitant]
  6. CYMBALTA [Concomitant]
  7. ATENOLOL [Concomitant]
  8. ISOSORBIDE DINITRATE [Concomitant]
  9. PLAVIX [Concomitant]
  10. ASPIRIN [Concomitant]
  11. LISINOPRIL [Concomitant]
  12. ZOCOR [Concomitant]
  13. RANITIDINE [Concomitant]
  14. GLIPIZIDE [Concomitant]

REACTIONS (4)
  - ATRIAL FIBRILLATION [None]
  - CORONARY ARTERY DISEASE [None]
  - MYOCARDIAL INFARCTION [None]
  - CARDIAC FAILURE CONGESTIVE [None]
